FAERS Safety Report 6544568-8 (Version None)
Quarter: 2010Q1

REPORT INFORMATION
  Report Type: 
  Country: None (occurrence: None)
  Receive Date: 20100115
  Receipt Date: 20100105
  Transmission Date: 20100710
  Serious: Yes (Other)
  Sender: FDA-Public Use
  Company Number: SPV1-2010-00005

PATIENT
  Age: 8 Year
  Sex: Male
  Weight: 28.6 kg

DRUGS (1)
  1. VYVANSE [Suspect]
     Indication: ATTENTION DEFICIT/HYPERACTIVITY DISORDER
     Dosage: 50 MG,ORAL
     Route: 048
     Dates: start: 20090101

REACTIONS (7)
  - ABDOMINAL PAIN UPPER [None]
  - AFFECT LABILITY [None]
  - DECREASED APPETITE [None]
  - INSOMNIA [None]
  - IRRITABILITY [None]
  - PALPITATIONS [None]
  - SYNCOPE [None]
